FAERS Safety Report 21713603 (Version 1)
Quarter: 2022Q4

REPORT INFORMATION
  Report Type: Spontaneous
  Country: US (occurrence: US)
  Receive Date: 20221212
  Receipt Date: 20221212
  Transmission Date: 20230113
  Serious: Yes (Other)
  Sender: FDA-Public Use
  Company Number: US-AMERICAN REGENT INC-2022002327

PATIENT

DRUGS (1)
  1. VENOFER [Suspect]
     Active Substance: IRON SUCROSE
     Indication: Product used for unknown indication
     Dosage: 500 MILLIGRAM, SINGLE
     Route: 042
     Dates: start: 20220129, end: 20220129

REACTIONS (6)
  - Bradycardia [Unknown]
  - Muscle spasms [Unknown]
  - Peripheral swelling [Unknown]
  - Dizziness [Unknown]
  - Hypotension [Unknown]
  - Product quality issue [Unknown]

NARRATIVE: CASE EVENT DATE: 20220129
